FAERS Safety Report 19807596 (Version 1)
Quarter: 2021Q3

REPORT INFORMATION
  Report Type: Spontaneous
  Country: US (occurrence: US)
  Receive Date: 20210908
  Receipt Date: 20210908
  Transmission Date: 20211014
  Serious: Yes (Other)
  Sender: FDA-Public Use
  Company Number: None

PATIENT
  Age: 68 Year
  Sex: Male
  Weight: 88.9 kg

DRUGS (2)
  1. REGEN,COV [Concomitant]
     Dates: start: 20210905, end: 20210905
  2. CASIRIVIMAB?IMDEVIMAB [Suspect]
     Active Substance: CASIRIVIMAB\IMDEVIMAB
     Indication: COVID-19
     Dates: start: 20210905, end: 20210905

REACTIONS (3)
  - Rectal haemorrhage [None]
  - Sputum discoloured [None]
  - Rectal discharge [None]

NARRATIVE: CASE EVENT DATE: 20210908
